FAERS Safety Report 5721922-5 (Version None)
Quarter: 2008Q2

REPORT INFORMATION
  Report Type: 
  Country: None (occurrence: None)
  Receive Date: 20080429
  Receipt Date: 20080424
  Transmission Date: 20081010
  Serious: Yes (Other)
  Sender: FDA-Public Use
  Company Number: US-PFIZER INC-2008018396

PATIENT
  Sex: Female
  Weight: 67.6 kg

DRUGS (4)
  1. LIPITOR [Suspect]
     Indication: HYPERLIPIDAEMIA
     Route: 048
     Dates: start: 20011002, end: 20080201
  2. LEVOXINE [Concomitant]
     Dosage: TEXT:0.088
  3. ACTONEL [Concomitant]
  4. VALIUM [Concomitant]

REACTIONS (1)
  - DEAFNESS UNILATERAL [None]
